FAERS Safety Report 24656299 (Version 1)
Quarter: 2024Q4

REPORT INFORMATION
  Report Type: Spontaneous
  Country: US (occurrence: US)
  Receive Date: 20241124
  Receipt Date: 20241124
  Transmission Date: 20250115
  Serious: No
  Sender: MERCK
  Company Number: US-009507513-2411USA003889

PATIENT
  Age: 80 Year
  Sex: Male
  Weight: 136.05 kg

DRUGS (1)
  1. JANUVIA [Suspect]
     Active Substance: SITAGLIPTIN PHOSPHATE
     Indication: Blood glucose increased
     Dosage: UNK, STRENGTH 50 MG, ONCE IN THE MORNING
     Route: 048

REACTIONS (2)
  - Fluid retention [Unknown]
  - Blood glucose increased [Unknown]
